FAERS Safety Report 4531320-8 (Version None)
Quarter: 2004Q4

REPORT INFORMATION
  Report Type: 
  Country: None (occurrence: None)
  Receive Date: 20041206
  Receipt Date: 20041007
  Transmission Date: 20050328
  Serious: No
  Sender: FDA-Public Use
  Company Number: USA041080517

PATIENT
  Sex: Female

DRUGS (2)
  1. CYMBALTA [Suspect]
     Indication: DEPRESSION
     Dosage: 30 MG/ 1 DAY
  2. LEXAPRO [Concomitant]

REACTIONS (2)
  - ABDOMINAL PAIN UPPER [None]
  - WEIGHT INCREASED [None]
